FAERS Safety Report 8620117-5 (Version None)
Quarter: 2012Q3

REPORT INFORMATION
  Report Type: 
  Country: None (occurrence: None)
  Receive Date: 20120824
  Receipt Date: 20120816
  Transmission Date: 20120928
  Serious: Yes (Hospitalization)
  Sender: FDA-Public Use
  Company Number: US-FRI-1000037888

PATIENT
  Sex: Male
  Weight: 88.4 kg

DRUGS (2)
  1. CELEXA [Suspect]
     Dosage: 20 MG
  2. INLYTA [Suspect]
     Indication: RENAL CELL CARCINOMA
     Dosage: 10 MG
     Route: 048
     Dates: start: 20120703, end: 20120716

REACTIONS (1)
  - MENTAL STATUS CHANGES [None]
